FAERS Safety Report 6344070-2 (Version None)
Quarter: 2009Q3

REPORT INFORMATION
  Report Type: 
  Country: None (occurrence: None)
  Receive Date: 20090908
  Receipt Date: 20090831
  Transmission Date: 20100115
  Serious: Yes (Life-Threatening, Hospitalization, Other)
  Sender: FDA-Public Use
  Company Number: US-MERCK-0906USA03693

PATIENT
  Age: 17 Year
  Sex: Female
  Weight: 67 kg

DRUGS (6)
  1. SINGULAIR [Suspect]
     Indication: BRONCHIAL HYPERREACTIVITY
     Route: 048
     Dates: start: 20020717
  2. SINGULAIR [Suspect]
     Indication: RHINITIS ALLERGIC
     Route: 048
     Dates: start: 20020717
  3. PROAIR HFA [Concomitant]
     Indication: BRONCHIAL HYPERREACTIVITY
     Dates: start: 20030101
  4. ADVAIR HFA [Concomitant]
     Indication: BRONCHIAL HYPERREACTIVITY
  5. XOPENEX [Concomitant]
     Indication: BRONCHIAL HYPERREACTIVITY
  6. VERAMYST [Concomitant]
     Indication: RHINITIS ALLERGIC

REACTIONS (5)
  - ANGER [None]
  - DEPRESSED MOOD [None]
  - DEPRESSION [None]
  - INTENTIONAL SELF-INJURY [None]
  - SUICIDAL IDEATION [None]
